FAERS Safety Report 24034121 (Version 1)
Quarter: 2024Q3

REPORT INFORMATION
  Report Type: Spontaneous
  Country: DE (occurrence: DE)
  Receive Date: 20240701
  Receipt Date: 20240701
  Transmission Date: 20241017
  Serious: Yes (Other)
  Sender: JOHNSON AND JOHNSON
  Company Number: DE-JNJFOC-20240662995

PATIENT
  Sex: Male

DRUGS (2)
  1. SPRAVATO [Suspect]
     Active Substance: ESKETAMINE
     Indication: Depression
     Dosage: AROUND 20 DOSES
  2. SPRAVATO [Suspect]
     Active Substance: ESKETAMINE
     Dosage: 3-4 SESSIONS

REACTIONS (2)
  - Pseudostroke [Recovering/Resolving]
  - Blood pressure increased [Recovering/Resolving]
